FAERS Safety Report 7942898-6 (Version None)
Quarter: 2011Q4

REPORT INFORMATION
  Report Type: 
  Country: None (occurrence: None)
  Receive Date: 20111128
  Receipt Date: 20111115
  Transmission Date: 20120403
  Serious: Yes (Other)
  Sender: FDA-Public Use
  Company Number: US-ELI_LILLY_AND_COMPANY-US201111005907

PATIENT
  Sex: Female

DRUGS (5)
  1. CYMBALTA [Suspect]
     Dosage: 30 MG, UNK
     Dates: end: 20110401
  2. CYMBALTA [Suspect]
     Dosage: 60 MG, UNK
  3. CYMBALTA [Suspect]
     Indication: POLYNEUROPATHY
     Dosage: 30 MG, UNK
     Dates: start: 20050101
  4. CYMBALTA [Suspect]
     Dosage: 20 MG, UNK
  5. SYNTHROID [Concomitant]

REACTIONS (12)
  - ABORTION SPONTANEOUS [None]
  - NAUSEA [None]
  - OFF LABEL USE [None]
  - PAIN [None]
  - VARICOSE VEIN [None]
  - MATERNAL EXPOSURE DURING PREGNANCY [None]
  - MUSCULAR WEAKNESS [None]
  - VOMITING [None]
  - ANXIETY [None]
  - DRUG WITHDRAWAL SYNDROME [None]
  - MUCOUS STOOLS [None]
  - BURNING SENSATION [None]
